FAERS Safety Report 21874523 (Version 2)
Quarter: 2023Q1

REPORT INFORMATION
  Report Type: Spontaneous
  Country: US (occurrence: None)
  Receive Date: 20230117
  Receipt Date: 20230222
  Transmission Date: 20230417
  Serious: No
  Sender: FDA-Public Use
  Company Number: 2023A007219

PATIENT
  Age: 21917 Day
  Sex: Female
  Weight: 77.1 kg

DRUGS (1)
  1. FASENRA [Suspect]
     Active Substance: BENRALIZUMAB
     Indication: Asthma
     Route: 058
     Dates: start: 202212

REACTIONS (7)
  - Dizziness [Recovered/Resolved]
  - Dizziness [Recovered/Resolved]
  - Dyspnoea [Unknown]
  - Dehydration [Unknown]
  - Weight increased [Unknown]
  - Stress [Unknown]
  - Eating disorder [Unknown]

NARRATIVE: CASE EVENT DATE: 20230109
